FAERS Safety Report 21452819 (Version 2)
Quarter: 2024Q2

REPORT INFORMATION
  Report Type: Other
  Country: JP (occurrence: JP)
  Receive Date: 20221013
  Receipt Date: 20240606
  Transmission Date: 20240716
  Serious: Yes (Other)
  Sender: FDA-Public Use
  Company Number: JP-CHUGAI-A2020052315ROCHE

PATIENT
  Age: 70 Year
  Sex: Female
  Weight: 61 kg

DRUGS (7)
  1. GAZYVA [Suspect]
     Active Substance: OBINUTUZUMAB
     Indication: Follicular lymphoma
     Route: 042
     Dates: start: 20190904, end: 20190904
  2. GAZYVA [Suspect]
     Active Substance: OBINUTUZUMAB
     Route: 041
     Dates: start: 20191005, end: 20191005
  3. GAZYVA [Suspect]
     Active Substance: OBINUTUZUMAB
     Route: 041
     Dates: start: 20191028, end: 20191028
  4. GAZYVA [Suspect]
     Active Substance: OBINUTUZUMAB
     Route: 041
     Dates: start: 20191216, end: 20191216
  5. GAZYVA [Suspect]
     Active Substance: OBINUTUZUMAB
     Route: 041
     Dates: start: 20200309, end: 20200309
  6. GAZYVA [Suspect]
     Active Substance: OBINUTUZUMAB
     Route: 041
     Dates: start: 20200728, end: 20200728
  7. BENDAMUSTINE HYDROCHLORIDE [Suspect]
     Active Substance: BENDAMUSTINE HYDROCHLORIDE
     Indication: Follicular lymphoma
     Dosage: LAST DOSE ON 30/JUL/2020
     Route: 041
     Dates: start: 20190905, end: 20200730

REACTIONS (3)
  - Myelosuppression [Unknown]
  - Lymphocyte count decreased [Recovered/Resolved]
  - Drug ineffective [Unknown]

NARRATIVE: CASE EVENT DATE: 20190907
